FAERS Safety Report 6577112-X (Version None)
Quarter: 2010Q1

REPORT INFORMATION
  Report Type: 
  Country: None (occurrence: None)
  Receive Date: 20100210
  Receipt Date: 20100129
  Transmission Date: 20100710
  Serious: Yes (Hospitalization)
  Sender: FDA-Public Use
  Company Number: TR-ELI_LILLY_AND_COMPANY-TR201002000323

PATIENT
  Weight: 3.2 kg

DRUGS (4)
  1. HUMULIN R [Suspect]
     Dosage: 5 U, 3/D
     Route: 064
     Dates: start: 20091015, end: 20091217
  2. HUMULIN N [Suspect]
     Dosage: 6 U, EACH EVENING
     Route: 064
     Dates: start: 20091015, end: 20091217
  3. IRON [Concomitant]
     Dosage: UNK, UNKNOWN
     Route: 064
     Dates: start: 20090501, end: 20091217
  4. CALCIUM [Concomitant]
     Dosage: UNK, UNKNOWN
     Route: 064
     Dates: start: 20090501, end: 20091217

REACTIONS (3)
  - DRUG EXPOSURE DURING PREGNANCY [None]
  - PREMATURE BABY [None]
  - RESPIRATORY DISORDER NEONATAL [None]
